FAERS Safety Report 15719186 (Version 2)
Quarter: 2019Q2

REPORT INFORMATION
  Report Type: Spontaneous
  Country: FR (occurrence: FR)
  Receive Date: 20181213
  Receipt Date: 20190614
  Transmission Date: 20190711
  Serious: Yes (Life-Threatening, Hospitalization, Other)
  Sender: FDA-Public Use
  Company Number: FR-JAZZ-2018-FR-017793

PATIENT

DRUGS (6)
  1. VYXEOS [Suspect]
     Active Substance: CYTARABINE\DAUNORUBICIN
     Indication: ACUTE MYELOID LEUKAEMIA
     Dosage: 44 MG/M2 DAY 1,3,5
     Route: 042
     Dates: start: 20181006, end: 2018
  2. EUPANTOL [Concomitant]
     Active Substance: PANTOPRAZOLE SODIUM
     Indication: PRODUCT USED FOR UNKNOWN INDICATION
     Dosage: 20 MG, UNK
     Route: 042
     Dates: start: 20180922
  3. NEFOPAM [Concomitant]
     Active Substance: NEFOPAM
     Indication: MUCOSAL INFLAMMATION
     Dosage: 120 MG, UNK
     Route: 042
     Dates: start: 20180928, end: 2018
  4. TOPALGIC [Concomitant]
     Indication: PRODUCT USED FOR UNKNOWN INDICATION
     Dosage: 200 MG, UNK
     Dates: start: 20181005
  5. VANCOMYCIN [Concomitant]
     Active Substance: VANCOMYCIN
     Indication: PRODUCT USED FOR UNKNOWN INDICATION
     Dosage: 2500 MG, UNK
     Route: 042
     Dates: start: 20181002, end: 2018
  6. LEVOTHYROX [Concomitant]
     Active Substance: LEVOTHYROXINE
     Indication: HYPOTHYROIDISM
     Dosage: 150 ?G, UNK
     Route: 048
     Dates: start: 20180922

REACTIONS (6)
  - Bacteraemia [Recovered/Resolved]
  - Pulmonary sepsis [Recovered/Resolved]
  - Toxic skin eruption [Recovered/Resolved]
  - Human herpesvirus 6 infection [Recovered/Resolved]
  - Alopecia [Recovered/Resolved]
  - Bronchopulmonary aspergillosis [Recovered/Resolved]

NARRATIVE: CASE EVENT DATE: 20181006
